FAERS Safety Report 17421254 (Version 2)
Quarter: 2020Q1

REPORT INFORMATION
  Report Type: Spontaneous
  Country: JP (occurrence: JP)
  Receive Date: 20200214
  Receipt Date: 20200330
  Transmission Date: 20200409
  Serious: Yes (Hospitalization, Other)
  Sender: FDA-Public Use
  Company Number: JP-PFIZER INC-2020055173

PATIENT
  Age: 40 Year
  Sex: Male

DRUGS (2)
  1. CERITINIB [Interacting]
     Active Substance: CERITINIB
     Dosage: 750 MG, 1X/DAY
  2. VORICONAZOLE. [Suspect]
     Active Substance: VORICONAZOLE
     Dosage: UNK

REACTIONS (3)
  - Hepatic function abnormal [Recovered/Resolved]
  - Drug interaction [Recovering/Resolving]
  - Interstitial lung disease [Recovering/Resolving]
